FAERS Safety Report 5753518-3 (Version None)
Quarter: 2008Q2

REPORT INFORMATION
  Report Type: 
  Country: None (occurrence: None)
  Receive Date: 20080530
  Receipt Date: 20080527
  Transmission Date: 20081010
  Serious: Yes (Other)
  Sender: FDA-Public Use
  Company Number: PHEH2007US14854

PATIENT
  Sex: Female

DRUGS (5)
  1. ZELNORM [Suspect]
     Dosage: 6 MG, QD
  2. METFORMIN HCL [Suspect]
  3. ISOSORBIDE DINITRATE [Suspect]
  4. DIOVAN [Suspect]
  5. ADVAIR DISKUS 100/50 [Suspect]

REACTIONS (4)
  - CORONARY ARTERIAL STENT INSERTION [None]
  - CORONARY ARTERY BYPASS [None]
  - MYOCARDIAL INFARCTION [None]
  - VASCULAR BYPASS DYSFUNCTION [None]
